FAERS Safety Report 22175881 (Version 1)
Quarter: 2023Q2

REPORT INFORMATION
  Report Type: Spontaneous
  Country: US (occurrence: None)
  Receive Date: 20230404
  Receipt Date: 20230404
  Transmission Date: 20230721
  Serious: No
  Sender: FDA-Public Use
  Company Number: None

PATIENT
  Sex: Female
  Weight: 66.6 kg

DRUGS (1)
  1. DEXTROAMPHET SACCHARAT, AMPHET ASPARTATE, DEXTROAMPHET SULFATE AND AMP [Suspect]
     Active Substance: AMPHETAMINE ASPARTATE\AMPHETAMINE ASPARTATE MONOHYDRATE\AMPHETAMINE SULFATE\DEXTROAMPHETAMINE SACCHA
     Indication: Attention deficit hyperactivity disorder
     Route: 048
     Dates: start: 20230316, end: 20230404

REACTIONS (9)
  - Hyperhidrosis [None]
  - Palpitations [None]
  - Respiratory rate increased [None]
  - Nausea [None]
  - Decreased appetite [None]
  - Fatigue [None]
  - Feeling abnormal [None]
  - Product substitution issue [None]
  - Exercise tolerance decreased [None]
